FAERS Safety Report 7250301-7 (Version None)
Quarter: 2011Q1

REPORT INFORMATION
  Report Type: 
  Country: None (occurrence: None)
  Receive Date: 20110119
  Receipt Date: 20110106
  Transmission Date: 20110831
  Serious: Yes (Hospitalization, Other)
  Sender: FDA-Public Use
  Company Number: CIP10001985

PATIENT
  Age: 70 Year
  Sex: Female
  Weight: 44.5 kg

DRUGS (34)
  1. RESTORIL (CHLOREMEXANONE) [Concomitant]
  2. MOVE FREE (CHONDROITIN SULFATE, GLUCOSAMINE) [Concomitant]
  3. VICODIN [Concomitant]
  4. BONIVA [Suspect]
     Dosage: DOSAGE/REGIMEN UNKNOWN, ORAL
     Route: 048
     Dates: start: 20081023
  5. HALCION [Concomitant]
  6. FLONASE [Concomitant]
  7. ZESTRIL [Concomitant]
  8. FOSAMAX [Suspect]
     Indication: OSTEOPOROSIS PROPHYLAXIS
     Dosage: 70 MG ONCE WEEKLY, ORAL
     Route: 048
     Dates: start: 19980101, end: 20040219
  9. FOSAMAX [Suspect]
     Indication: OSTEOPOROSIS
     Dosage: 70 MG ONCE WEEKLY, ORAL
     Route: 048
     Dates: start: 19980101, end: 20040219
  10. WELLBURTIN (BUPROPION) [Concomitant]
  11. OMEGA 3 FISH OIL (FISH OIL) [Concomitant]
  12. LEXAPRO [Concomitant]
  13. METHYLPREDNISOLONE [Concomitant]
  14. OXYGEN [Concomitant]
  15. VOLTAREN [Concomitant]
  16. SINGULAIR [Concomitant]
  17. XANAX [Concomitant]
  18. DETROL LA [Concomitant]
  19. PREMPRO [Concomitant]
  20. ACTONEL [Suspect]
     Dosage: 30MG, DAILY, ORAL
     Route: 048
     Dates: start: 20060406
  21. COUMADIN [Concomitant]
  22. CELEBREX [Concomitant]
  23. ZYMAR [Concomitant]
  24. ACTONEL [Suspect]
     Dosage: 35 MG ONCE WEEKLY, ORAL
     Route: 048
     Dates: start: 20040219, end: 20080328
  25. ACTONEL [Suspect]
     Dosage: 35 MG ONCE WEEKLY, ORAL
     Route: 048
     Dates: start: 20090501
  26. LIPITOR [Concomitant]
  27. CALCIUM [Concomitant]
  28. VITAMIN D [Concomitant]
  29. ASCORBIC ACID [Concomitant]
  30. MIACALCIN [Concomitant]
  31. MULTIVITAM (VITAMINS NOS) [Concomitant]
  32. FEROCON (FERROUS FUMARATE, FOLIC ACID, VITAMIN-B-KOMPLEX STANDARD) [Concomitant]
  33. CELEXA [Concomitant]
  34. CO Q-10 (UBIDECARENONE) [Concomitant]

REACTIONS (29)
  - ATELECTASIS [None]
  - RIB FRACTURE [None]
  - LUMBAR RADICULOPATHY [None]
  - DRUG INTOLERANCE [None]
  - ROAD TRAFFIC ACCIDENT [None]
  - UPPER RESPIRATORY TRACT INFECTION [None]
  - ARTHRALGIA [None]
  - MUSCULAR WEAKNESS [None]
  - ANAEMIA POSTOPERATIVE [None]
  - PROCEDURAL PAIN [None]
  - MUSCLE INJURY [None]
  - EMPHYSEMA [None]
  - BALANCE DISORDER [None]
  - PAIN IN EXTREMITY [None]
  - HIP FRACTURE [None]
  - LOW TURNOVER OSTEOPATHY [None]
  - SKELETAL INJURY [None]
  - GAIT DISTURBANCE [None]
  - DIZZINESS [None]
  - DEHYDRATION [None]
  - TRAUMATIC FRACTURE [None]
  - BRONCHITIS CHRONIC [None]
  - WEIGHT BEARING DIFFICULTY [None]
  - STRESS FRACTURE [None]
  - PATELLOFEMORAL PAIN SYNDROME [None]
  - FALL [None]
  - FEMORAL NECK FRACTURE [None]
  - ECCHYMOSIS [None]
  - VOMITING [None]
